FAERS Safety Report 18428577 (Version 2)
Quarter: 2020Q4

REPORT INFORMATION
  Report Type: Spontaneous
  Country: US (occurrence: US)
  Receive Date: 20201026
  Receipt Date: 20201106
  Transmission Date: 20210114
  Serious: Yes (Death, Other)
  Sender: FDA-Public Use
  Company Number: US-OTSUKA-2020_026098

PATIENT
  Age: 3 Year
  Sex: Female
  Weight: 14.5 kg

DRUGS (7)
  1. BUSULFAN. [Suspect]
     Active Substance: BUSULFAN
     Indication: STEM CELL TRANSPLANT
  2. TOPOTECAN HYDROCHLORIDE. [Suspect]
     Active Substance: TOPOTECAN HYDROCHLORIDE
     Indication: BONE MARROW CONDITIONING REGIMEN
     Dosage: 2 MG/M2, QD (CONTINUOUSLY OVER 24 HOURS ON DAYS -8 TO -4)
     Route: 042
  3. URSODIOL. [Concomitant]
     Active Substance: URSODIOL
     Indication: PRODUCT USED FOR UNKNOWN INDICATION
     Dosage: UNK
     Route: 065
     Dates: start: 200601
  4. MELPHALAN. [Suspect]
     Active Substance: MELPHALAN
     Indication: STEM CELL TRANSPLANT
  5. BUSULFAN. [Suspect]
     Active Substance: BUSULFAN
     Indication: BONE MARROW CONDITIONING REGIMEN
     Dosage: ON DAYS -8 TO -4 FOR TOTAL OF 16 DOSES
     Route: 042
  6. MELPHALAN. [Suspect]
     Active Substance: MELPHALAN
     Indication: BONE MARROW CONDITIONING REGIMEN
     Dosage: 70 MG/M2, OVER 30 MIN ON DAYS -3 TO -2
     Route: 042
  7. TOPOTECAN HYDROCHLORIDE. [Suspect]
     Active Substance: TOPOTECAN HYDROCHLORIDE
     Indication: STEM CELL TRANSPLANT

REACTIONS (2)
  - Respiratory failure [Fatal]
  - Sepsis [Fatal]
